FAERS Safety Report 10034941 (Version 1)
Quarter: 2014Q1

REPORT INFORMATION
  Report Type: Spontaneous
  Country: US (occurrence: None)
  Receive Date: 20140306
  Receipt Date: 20140306
  Transmission Date: 20141002
  Serious: Yes (Hospitalization)
  Sender: FDA-Public Use
  Company Number: 163-21880-13063054

PATIENT
  Age: 73 Year
  Sex: Male

DRUGS (16)
  1. REVLIMID (LENALIDOMIDE)(CAPSULES) [Suspect]
     Indication: PLASMA CELL MYELOMA
     Dosage: 25 MG, 14 IN 14 D, PO
     Route: 048
     Dates: start: 20121030, end: 201306
  2. ACYCLOVIR [Concomitant]
  3. AMLODIPINE BESYLATE [Concomitant]
  4. DEXAMETHASONE [Concomitant]
  5. ISOSORBIDE DIMETHYL ETHER [Concomitant]
  6. LORAZEPAM [Concomitant]
  7. METOPROLOL TARTRATE [Concomitant]
  8. MORPHINE SULFATE [Concomitant]
  9. XARELTO (RIVAROXABAN) [Concomitant]
  10. MULTAQ (DRONEDARONE HYDROCHLORIDE) [Concomitant]
  11. LASIX (FUROSEMIDE) [Concomitant]
  12. DIABETES MEDICATION (ANTI-DIABETICS) [Concomitant]
  13. LEVAQUIN (LEVOFLOXACIN) [Concomitant]
  14. MAXIPIME (CEFEPIME HYDROCHLORIDE) [Concomitant]
  15. STEROIDS (CORTICOSTEROIDS) [Concomitant]
  16. BRONCHODILATOR [Concomitant]

REACTIONS (3)
  - Leukopenia [None]
  - Infective exacerbation of chronic obstructive airways disease [None]
  - Cardiac failure congestive [None]
